FAERS Safety Report 9496656 (Version 1)
Quarter: 2013Q3

REPORT INFORMATION
  Report Type: Spontaneous
  Country: FR (occurrence: None)
  Receive Date: 20130828
  Receipt Date: 20130828
  Transmission Date: 20140515
  Serious: Yes (Other)
  Sender: FDA-Public Use
  Company Number: FR-20130336

PATIENT
  Age: 61 Year
  Sex: Male

DRUGS (4)
  1. DOTAREM [Suspect]
     Indication: PRODUCT USED FOR UNKNOWN INDICATION
     Dosage: 16 (16, 1 IN 1D)
     Route: 042
     Dates: start: 20130812, end: 20130812
  2. PENTASA (MESALAZINE (MESALAZINE) [Concomitant]
  3. SEROPLEX (ESCITALOPRAM OXALATE) (ESCITALOPRAM OXALATE) [Concomitant]
  4. INEXIUM (ESOMEPRAZOLE MAGNESIUM) (ESOMEPRAZOLE MAGNESIUM) [Concomitant]

REACTIONS (3)
  - Erythema [None]
  - Pruritus [None]
  - Throat irritation [None]
